FAERS Safety Report 12376997 (Version 1)
Quarter: 2016Q2

REPORT INFORMATION
  Report Type: Spontaneous
  Country: US (occurrence: US)
  Receive Date: 20160517
  Receipt Date: 20160517
  Transmission Date: 20160815
  Serious: No
  Sender: FDA-Public Use
  Company Number: US-MALLINCKRODT-T201504104

PATIENT
  Age: 32 Year
  Sex: Female
  Weight: 106 kg

DRUGS (6)
  1. H.P. ACTHAR [Suspect]
     Active Substance: CORTICOTROPIN
     Indication: MULTIPLE SCLEROSIS
     Dosage: 80 UNITS ONCE DAILY FOR 5 DAYS
     Route: 030
     Dates: start: 20150819, end: 20150824
  2. PROZAC [Concomitant]
     Active Substance: FLUOXETINE HYDROCHLORIDE
  3. TRAMADOL. [Concomitant]
     Active Substance: TRAMADOL
  4. BACLOFEN. [Concomitant]
     Active Substance: BACLOFEN
  5. MECLIZINE [Concomitant]
     Active Substance: MECLIZINE HYDROCHLORIDE
  6. NAPROXEN. [Concomitant]
     Active Substance: NAPROXEN

REACTIONS (3)
  - Vulvovaginal pain [Not Recovered/Not Resolved]
  - Genital pain [Recovered/Resolved]
  - Genital contusion [Recovered/Resolved]

NARRATIVE: CASE EVENT DATE: 20150822
